FAERS Safety Report 5705924-0 (Version None)
Quarter: 2008Q2

REPORT INFORMATION
  Report Type: 
  Country: None (occurrence: None)
  Receive Date: 20080411
  Receipt Date: 20080328
  Transmission Date: 20081010
  Serious: Yes (Hospitalization, Other)
  Sender: FDA-Public Use
  Company Number: 2008BI003216

PATIENT
  Age: 53 Year
  Sex: Female

DRUGS (7)
  1. TYSABRI [Suspect]
     Indication: MULTIPLE SCLEROSIS
     Dosage: 300 MG:QM:IV
     Route: 042
     Dates: start: 20071031
  2. AMANTADINE HCL [Concomitant]
  3. SOTALOL HCL [Concomitant]
  4. ASPIRIN [Concomitant]
  5. FOSAMAX [Concomitant]
  6. DIAZEPAM [Concomitant]
  7. CLARITIN [Concomitant]

REACTIONS (5)
  - ABSCESS RUPTURE [None]
  - CONSTIPATION [None]
  - DIVERTICULITIS [None]
  - RECTAL HAEMORRHAGE [None]
  - RESPIRATORY RATE INCREASED [None]
